FAERS Safety Report 24967902 (Version 7)
Quarter: 2025Q3

REPORT INFORMATION
  Report Type: Spontaneous
  Country: US (occurrence: US)
  Receive Date: 20250214
  Receipt Date: 20250909
  Transmission Date: 20251020
  Serious: No
  Sender: SUNOVION
  Company Number: US-SMPA-2024MYSCI0200058AA

PATIENT
  Age: 81 Year
  Sex: Male

DRUGS (21)
  1. ORGOVYX [Suspect]
     Active Substance: RELUGOLIX
     Indication: Prostate cancer
     Dosage: 120 MILLIGRAM, QD
     Route: 048
  2. XTANDI [Concomitant]
     Active Substance: ENZALUTAMIDE
     Indication: Prostate cancer
     Route: 048
  3. XTANDI [Concomitant]
     Active Substance: ENZALUTAMIDE
     Dosage: 160 MG, QD
     Route: 048
     Dates: start: 20250204
  4. OCUVITE [Concomitant]
     Active Substance: VITAMINS
     Route: 048
  5. DIETARY SUPPLEMENT\HERBALS\MILK THISTLE [Concomitant]
     Active Substance: MILK THISTLE
     Route: 048
  6. METOPROLOL SUCCINATE [Concomitant]
     Active Substance: METOPROLOL SUCCINATE
     Route: 048
  7. METFORMIN HYDROCHLORIDE [Concomitant]
     Active Substance: METFORMIN HYDROCHLORIDE
     Route: 048
  8. LISINOPRIL [Concomitant]
     Active Substance: LISINOPRIL
     Route: 048
  9. KLOR-CON M10 [Concomitant]
     Active Substance: POTASSIUM CHLORIDE
     Route: 048
  10. HYDROCHLOROTHIAZIDE [Concomitant]
     Active Substance: HYDROCHLOROTHIAZIDE
     Route: 048
  11. GLIPIZIDE [Concomitant]
     Active Substance: GLIPIZIDE
     Route: 048
  12. FISH OIL [Concomitant]
     Active Substance: FISH OIL
     Route: 048
  13. MINERALS\VITAMINS [Concomitant]
     Active Substance: MINERALS\VITAMINS
     Route: 048
  14. ATORVASTATIN CALCIUM [Concomitant]
     Active Substance: ATORVASTATIN CALCIUM
     Route: 048
  15. ASPIRIN [Concomitant]
     Active Substance: ASPIRIN
     Route: 048
  16. AMLODIPINE BESYLATE [Concomitant]
     Active Substance: AMLODIPINE BESYLATE
     Route: 048
  17. HERBALS\TURMERIC [Concomitant]
     Active Substance: HERBALS\TURMERIC
     Route: 048
  18. TRAMADOL HCL [Concomitant]
     Active Substance: TRAMADOL HYDROCHLORIDE
     Route: 048
  19. TAMSULOSIN HYDROCHLORIDE [Concomitant]
     Active Substance: TAMSULOSIN HYDROCHLORIDE
     Route: 048
  20. PFIZER-BIONTECH COVID-19 VACCINE [Concomitant]
     Active Substance: TOZINAMERAN
     Route: 030
  21. Osteo bi-flex ease [Concomitant]
     Dosage: 1 TABLET, QD
     Route: 048

REACTIONS (16)
  - Dyspnoea [Unknown]
  - Head discomfort [Unknown]
  - Rhinorrhoea [Unknown]
  - Vomiting [Unknown]
  - Muscular weakness [Unknown]
  - Ageusia [Unknown]
  - Nausea [Unknown]
  - Dizziness [Unknown]
  - Blood glucose increased [Unknown]
  - Arthralgia [Unknown]
  - Hot flush [Unknown]
  - Fatigue [Unknown]
  - Asthenia [Unknown]
  - Insomnia [Unknown]
  - Constipation [Unknown]
  - Incorrect dose administered [Recovered/Resolved]
